FAERS Safety Report 13234368 (Version 1)
Quarter: 2017Q1

REPORT INFORMATION
  Report Type: Spontaneous
  Country: US (occurrence: US)
  Receive Date: 20170215
  Receipt Date: 20170215
  Transmission Date: 20170428
  Serious: Yes (Hospitalization)
  Sender: FDA-Public Use
  Company Number: None

PATIENT
  Age: 60 Year
  Sex: Male

DRUGS (5)
  1. DAPTOMYCIN. [Suspect]
     Active Substance: DAPTOMYCIN
  2. MEROPENEM. [Suspect]
     Active Substance: MEROPENEM
  3. ERTAPENEM [Suspect]
     Active Substance: ERTAPENEM
  4. PANTOPRAZOLE [Suspect]
     Active Substance: PANTOPRAZOLE SODIUM
  5. CEFTRIAXONE. [Suspect]
     Active Substance: CEFTRIAXONE

REACTIONS (2)
  - Clostridium difficile infection [None]
  - Urinary tract infection [None]

NARRATIVE: CASE EVENT DATE: 20150918
